FAERS Safety Report 24277380 (Version 1)
Quarter: 2024Q3

REPORT INFORMATION
  Report Type: Spontaneous
  Country: PT (occurrence: PT)
  Receive Date: 20240903
  Receipt Date: 20240903
  Transmission Date: 20241016
  Serious: Yes (Other)
  Sender: MYLAN
  Company Number: PT-MYLANLABS-2024M1079545

PATIENT
  Age: 70 Year
  Sex: Female
  Weight: 53 kg

DRUGS (6)
  1. AMIODARONE [Suspect]
     Active Substance: AMIODARONE
     Indication: Arrhythmia prophylaxis
     Dosage: 200 MILLIGRAM, QD (AT BREAKFAST)
     Route: 048
     Dates: start: 202402, end: 202403
  2. CARVEDILOL [Concomitant]
     Active Substance: CARVEDILOL
     Indication: Cardiac failure
     Dosage: UNK, BID (HALF A TABLET IN THE MORNING AND HALF AT NIGHT)
     Route: 048
  3. SPIRONOLACTONE [Concomitant]
     Active Substance: SPIRONOLACTONE
     Indication: Cardiac failure
     Dosage: 25 MILLIGRAM, QD (AT LUNCH)
     Route: 048
  4. ENTRESTO [Concomitant]
     Active Substance: SACUBITRIL\VALSARTAN
     Indication: Cardiac failure
     Dosage: 1 DOSAGE FORM, BID (1 IN THE MORNING AND 1 AT NIGHT)
     Route: 048
  5. METHIMAZOLE [Concomitant]
     Active Substance: METHIMAZOLE
     Indication: Hyperthyroidism
     Dosage: 5 MILLIGRAM, QD
     Route: 048
     Dates: start: 202405
  6. METHIMAZOLE [Concomitant]
     Active Substance: METHIMAZOLE
     Dosage: 10 MILLIGRAM, QD (IN THE MORNING, ACTUAL DOSE))
     Route: 048

REACTIONS (12)
  - Hyperthyroidism [Not Recovered/Not Resolved]
  - Haemorrhoids [Recovered/Resolved]
  - Gastritis [Not Recovered/Not Resolved]
  - Psoriasis [Recovering/Resolving]
  - Skin fissures [Recovering/Resolving]
  - Oropharyngeal pain [Not Recovered/Not Resolved]
  - Diarrhoea [Not Recovered/Not Resolved]
  - Visual impairment [Not Recovered/Not Resolved]
  - Temperature intolerance [Not Recovered/Not Resolved]
  - N-terminal prohormone brain natriuretic peptide increased [Not Recovered/Not Resolved]
  - Hyperhidrosis [Not Recovered/Not Resolved]
  - Skin haemorrhage [Recovering/Resolving]

NARRATIVE: CASE EVENT DATE: 20240101
